FAERS Safety Report 15151048 (Version 1)
Quarter: 2018Q3

REPORT INFORMATION
  Report Type: Spontaneous
  Country: US (occurrence: US)
  Receive Date: 20180716
  Receipt Date: 20180716
  Transmission Date: 20181010
  Serious: No
  Sender: FDA-Public Use
  Company Number: US-SA-2018SA188190

PATIENT
  Age: 48 Year
  Sex: Female
  Weight: 133 kg

DRUGS (2)
  1. LEMTRADA [Suspect]
     Active Substance: ALEMTUZUMAB
     Indication: MULTIPLE SCLEROSIS
     Dosage: UNK UNK, QD
     Route: 041
     Dates: start: 20180501, end: 20180503
  2. VITAMIN D [ERGOCALCIFEROL] [Concomitant]
     Indication: VITAMIN D DECREASED
     Dosage: 50000 MG/G, QW
     Dates: start: 201806

REACTIONS (2)
  - Peripheral swelling [Not Recovered/Not Resolved]
  - Thyroid disorder [Not Recovered/Not Resolved]

NARRATIVE: CASE EVENT DATE: 201806
